FAERS Safety Report 17366611 (Version 1)
Quarter: 2020Q1

REPORT INFORMATION
  Report Type: Spontaneous
  Country: NL (occurrence: NL)
  Receive Date: 20200204
  Receipt Date: 20200204
  Transmission Date: 20200409
  Serious: Yes (Other)
  Sender: FDA-Public Use
  Company Number: NL-JNJFOC-20200144924

PATIENT
  Age: 10 Year
  Sex: Male
  Weight: 60 kg

DRUGS (2)
  1. CONCERTA [Suspect]
     Active Substance: METHYLPHENIDATE HYDROCHLORIDE
     Indication: DISTURBANCE IN ATTENTION
  2. CONCERTA [Suspect]
     Active Substance: METHYLPHENIDATE HYDROCHLORIDE
     Indication: ANXIETY
     Dosage: TABLET, 5 MG (MILLIGRAM), 2 KEER PER DAG, 1
     Route: 048
     Dates: start: 20200102, end: 20200103

REACTIONS (5)
  - Aggression [Recovering/Resolving]
  - Panic attack [Recovering/Resolving]
  - Intentional self-injury [Recovering/Resolving]
  - Anger [Recovering/Resolving]
  - Suicidal ideation [Recovering/Resolving]

NARRATIVE: CASE EVENT DATE: 20200103
